FAERS Safety Report 4355562-X (Version None)
Quarter: 2004Q2

REPORT INFORMATION
  Report Type: 
  Country: None (occurrence: None)
  Receive Date: 20040430
  Receipt Date: 20030724
  Transmission Date: 20050107
  Serious: Yes (Death)
  Sender: FDA-Public Use
  Company Number: KDL035621

PATIENT
  Age: 75 Year
  Sex: Female
  Weight: 63.6 kg

DRUGS (9)
  1. EPOGEN [Suspect]
     Indication: ANAEMIA OF MALIGNANT DISEASE
     Dosage: 40000 U, WEEKLY, SC
     Route: 058
     Dates: start: 20030331
  2. VINORELBINE TARTRATE [Concomitant]
  3. AMLODIPINE BESYLATE [Concomitant]
  4. QUINAPRIL HYDROCHLORIDE [Concomitant]
  5. GEMCITABINE HCL [Concomitant]
  6. IRINOTECAN HYDROCHLORIDE [Concomitant]
  7. PACLITAXEL [Concomitant]
  8. FENTANYL [Concomitant]
  9. MIRALAX [Concomitant]

REACTIONS (1)
  - MALIGNANT NEOPLASM PROGRESSION [None]
